FAERS Safety Report 9258186 (Version 1)
Quarter: 2013Q2

REPORT INFORMATION
  Report Type: Spontaneous
  Country: FR (occurrence: FR)
  Receive Date: 20130426
  Receipt Date: 20130426
  Transmission Date: 20140414
  Serious: Yes (Hospitalization, Disabling)
  Sender: FDA-Public Use
  Company Number: FR-BAYER-2013-051570

PATIENT
  Age: 32 Year
  Sex: Female

DRUGS (1)
  1. QLAIRA [Suspect]
     Indication: ORAL CONTRACEPTION
     Dosage: UNK
     Route: 048
     Dates: start: 201211

REACTIONS (2)
  - Ischaemic stroke [Recovered/Resolved with Sequelae]
  - Hemiplegia [Recovering/Resolving]
